FAERS Safety Report 5756665-5 (Version None)
Quarter: 2008Q2

REPORT INFORMATION
  Report Type: 
  Country: None (occurrence: None)
  Receive Date: 20080603
  Receipt Date: 20080521
  Transmission Date: 20081010
  Serious: Yes (Other)
  Sender: FDA-Public Use
  Company Number: GR-BAYER-200819011GPV

PATIENT

DRUGS (3)
  1. CIPROFLOXACIN HCL [Suspect]
     Indication: NEUTROPENIA
     Dosage: TOTAL DAILY DOSE: 1 G
     Route: 048
  2. AMOXICILLIN + CLAVULANATE POTASSIUM [Suspect]
     Indication: NEUTROPENIA
     Dosage: AS USED: 625 MG
     Route: 048
  3. NEUPOGEN [Concomitant]
     Indication: NEUTROPENIA
     Dosage: TOTAL DAILY DOSE: 5 ?G/KG
     Route: 058

REACTIONS (1)
  - TREATMENT FAILURE [None]
